FAERS Safety Report 16903395 (Version 5)
Quarter: 2020Q1

REPORT INFORMATION
  Report Type: Spontaneous
  Country: US (occurrence: US)
  Receive Date: 20191010
  Receipt Date: 20200327
  Transmission Date: 20200409
  Serious: Yes (Hospitalization, Other)
  Sender: FDA-Public Use
  Company Number: US-PFIZER INC-2019434960

PATIENT
  Age: 58 Year
  Sex: Female
  Weight: 68.49 kg

DRUGS (12)
  1. CITALOPRAM [Concomitant]
     Active Substance: CITALOPRAM HYDROBROMIDE
     Dosage: 20 MG, DAILY
     Dates: start: 201706
  2. TRIAMTERENE HCTZ [Concomitant]
     Active Substance: HYDROCHLOROTHIAZIDE\TRIAMTERENE
     Dosage: 25 MG, 1X/DAY
     Dates: start: 201801
  3. RANITIDINE [RANITIDINE HYDROCHLORIDE] [Concomitant]
     Active Substance: RANITIDINE
     Dosage: 150 MG, 2X/DAY
     Dates: start: 201801
  4. ASPIRIN [ACETYLSALICYLIC ACID] [Concomitant]
     Active Substance: ASPIRIN
     Dosage: 5 MG, DAILY
     Dates: start: 201904
  5. TOPIRAMATE. [Concomitant]
     Active Substance: TOPIRAMATE
     Dosage: 100 MG, 1X/DAY
     Dates: start: 201710
  6. LYRICA [Suspect]
     Active Substance: PREGABALIN
     Dosage: 150 MG, 2X/DAY
     Route: 048
     Dates: start: 201712
  7. LYRICA [Suspect]
     Active Substance: PREGABALIN
     Dosage: 150 MG, 2X/DAY
     Route: 048
     Dates: start: 20200113, end: 20200206
  8. LYRICA [Suspect]
     Active Substance: PREGABALIN
     Indication: FIBROMYALGIA
     Dosage: 150 MG, 2X/DAY
     Route: 048
     Dates: start: 20171011
  9. MECLIZINE [Concomitant]
     Active Substance: MECLIZINE HYDROCHLORIDE
     Dosage: UNK, 3X/DAY
     Dates: start: 201803
  10. ATORVASTATINE [ATORVASTATIN] [Concomitant]
     Active Substance: ATORVASTATIN
     Dosage: 40 MG, DAILY
     Dates: start: 201910
  11. AMLODIPINE [Concomitant]
     Active Substance: AMLODIPINE BESYLATE
     Dosage: 5 MG, 1X/DAY
     Dates: start: 2016
  12. DAIRY RELIEF [Concomitant]
     Dosage: UNK, AS NEEDED

REACTIONS (25)
  - Ear infection [Unknown]
  - Muscle spasms [Unknown]
  - Mental fatigue [Unknown]
  - Product physical issue [Unknown]
  - Malaise [Unknown]
  - Drug dependence [Recovered/Resolved]
  - Disturbance in attention [Unknown]
  - Suspected product contamination [Unknown]
  - Influenza [Unknown]
  - Lethargy [Recovered/Resolved]
  - Nasopharyngitis [Unknown]
  - Lymphadenopathy [Unknown]
  - Fatigue [Unknown]
  - Drug ineffective [Unknown]
  - Asthenia [Unknown]
  - Speech disorder [Unknown]
  - Nausea [Unknown]
  - Mental disorder [Recovered/Resolved]
  - Pain [Not Recovered/Not Resolved]
  - Loss of personal independence in daily activities [Recovered/Resolved]
  - Balance disorder [Unknown]
  - Vertigo [Unknown]
  - Arthralgia [Recovered/Resolved]
  - Dysgraphia [Unknown]
  - Thinking abnormal [Unknown]

NARRATIVE: CASE EVENT DATE: 20200118
